FAERS Safety Report 8389277-8 (Version None)
Quarter: 2012Q2

REPORT INFORMATION
  Report Type: 
  Country: None (occurrence: None)
  Receive Date: 20120528
  Receipt Date: 20120516
  Transmission Date: 20120825
  Serious: Yes (Other)
  Sender: FDA-Public Use
  Company Number: US-BAYER-2012-049408

PATIENT
  Age: 37 Year
  Sex: Male
  Weight: 100 kg

DRUGS (8)
  1. PRASUGREL [Concomitant]
  2. FENOFIBRATE [Concomitant]
  3. ASPIRIN [Suspect]
     Indication: ISCHAEMIC HEART DISEASE PROPHYLAXIS
     Dosage: 2 DF, BID
     Route: 048
     Dates: start: 20120101
  4. LASIX [Concomitant]
  5. LISINOPRIL [Concomitant]
  6. COREG [Concomitant]
  7. ALDACTONE [POTASSIUM CANRENOATE] [Concomitant]
  8. SIMVASTATIN [Concomitant]

REACTIONS (1)
  - EJECTION FRACTION DECREASED [None]
